FAERS Safety Report 6899149-3 (Version None)
Quarter: 2010Q3

REPORT INFORMATION
  Report Type: 
  Country: None (occurrence: None)
  Receive Date: 20100802
  Receipt Date: 20080118
  Transmission Date: 20110219
  Serious: Yes (Other)
  Sender: FDA-Public Use
  Company Number: US-PFIZER INC-2007070575

PATIENT

DRUGS (2)
  1. LYRICA [Suspect]
     Indication: NERVE INJURY
     Route: 048
     Dates: start: 20070802, end: 20070801
  2. LYRICA [Suspect]
     Indication: NEURITIS

REACTIONS (4)
  - HALLUCINATION [None]
  - MEMORY IMPAIRMENT [None]
  - SENSORY DISTURBANCE [None]
  - SOMNOLENCE [None]
